FAERS Safety Report 13736489 (Version 1)
Quarter: 2017Q3

REPORT INFORMATION
  Report Type: Spontaneous
  Country: US (occurrence: US)
  Receive Date: 20170710
  Receipt Date: 20170710
  Transmission Date: 20171127
  Serious: Yes (Other)
  Sender: FDA-Public Use
  Company Number: US-MYLANLABS-2017M1039303

PATIENT

DRUGS (1)
  1. METHYLPHENIDATE. [Suspect]
     Active Substance: METHYLPHENIDATE
     Indication: ATTENTION DEFICIT/HYPERACTIVITY DISORDER
     Dosage: UNK

REACTIONS (7)
  - Suicidal ideation [Unknown]
  - Condition aggravated [Unknown]
  - Drug ineffective [Unknown]
  - Irritability [Unknown]
  - Anxiety [Unknown]
  - Anger [Unknown]
  - Agitation [Unknown]
